FAERS Safety Report 5000173-6 (Version None)
Quarter: 2006Q2

REPORT INFORMATION
  Report Type: 
  Country: None (occurrence: None)
  Receive Date: 20060504
  Receipt Date: 20060420
  Transmission Date: 20061013
  Serious: Yes (Hospitalization, Disabling)
  Sender: FDA-Public Use
  Company Number: THYM-10921

PATIENT
  Age: 47 Year
  Sex: Male
  Weight: 72 kg

DRUGS (1)
  1. THYMOGLOBULIN [Suspect]
     Indication: HEART TRANSPLANT
     Dosage: 125 MG QD IV
     Route: 042
     Dates: start: 20060224, end: 20060227

REACTIONS (2)
  - HEART TRANSPLANT REJECTION [None]
  - PLATELET COUNT DECREASED [None]
